FAERS Safety Report 14900439 (Version 1)
Quarter: 2018Q2

REPORT INFORMATION
  Report Type: Spontaneous
  Country: FR (occurrence: FR)
  Receive Date: 20180516
  Receipt Date: 20180516
  Transmission Date: 20180711
  Serious: Yes (Other)
  Sender: FDA-Public Use
  Company Number: FR-MERCK KGAA-2047907

PATIENT
  Age: 48 Year
  Sex: Female

DRUGS (1)
  1. NOVOTHYROX [Suspect]
     Active Substance: LEVOTHYROXINE SODIUM
     Indication: PRODUCT USED FOR UNKNOWN INDICATION

REACTIONS (31)
  - Loss of personal independence in daily activities [None]
  - Musculoskeletal pain [None]
  - Hypertension [None]
  - Constipation [None]
  - Asocial behaviour [None]
  - Muscle spasms [None]
  - Sensory loss [None]
  - Insomnia [None]
  - Temperature intolerance [None]
  - Hot flush [None]
  - Amnesia [None]
  - Sensation of foreign body [None]
  - Bowel movement irregularity [None]
  - Decreased interest [None]
  - Palpitations [None]
  - Dyspnoea [None]
  - Stress [None]
  - Movement disorder [None]
  - Nausea [None]
  - Dizziness [None]
  - Irritability [None]
  - Emotional distress [None]
  - Fatigue [None]
  - Arthralgia [None]
  - Feeling abnormal [None]
  - Diarrhoea [None]
  - Headache [None]
  - Pharyngeal oedema [None]
  - Alopecia [None]
  - Throat tightness [None]
  - Sense of oppression [None]

NARRATIVE: CASE EVENT DATE: 201706
